FAERS Safety Report 6841067-0 (Version None)
Quarter: 2010Q3

REPORT INFORMATION
  Report Type: 
  Country: None (occurrence: None)
  Receive Date: 20100714
  Receipt Date: 20070626
  Transmission Date: 20110219
  Serious: No
  Sender: FDA-Public Use
  Company Number: US-PFIZER INC-2007053226

PATIENT
  Sex: Female
  Weight: 55.454 kg

DRUGS (1)
  1. CHANTIX [Suspect]
     Indication: SMOKING CESSATION THERAPY
     Dates: start: 20070619

REACTIONS (4)
  - DISTURBANCE IN ATTENTION [None]
  - FATIGUE [None]
  - POLLAKIURIA [None]
  - SOMNOLENCE [None]
